FAERS Safety Report 14983528 (Version 1)
Quarter: 2018Q2

REPORT INFORMATION
  Report Type: Report from Study
  Country: DE (occurrence: DE)
  Receive Date: 20180607
  Receipt Date: 20180607
  Transmission Date: 20180711
  Serious: Yes (Other)
  Sender: FDA-Public Use
  Company Number: DE-TEVA-2018-DE-901020

PATIENT

DRUGS (2)
  1. HEPARIN [Suspect]
     Active Substance: HEPARIN SODIUM
     Indication: ANTICOAGULANT THERAPY
     Dosage: 300 U/KG
     Route: 065
  2. PROTAMINE [Concomitant]
     Active Substance: PROTAMINE
     Route: 065

REACTIONS (6)
  - Heparin-induced thrombocytopenia [Unknown]
  - Cerebral artery embolism [Unknown]
  - Haemorrhage intracranial [Unknown]
  - Cerebrovascular accident [Unknown]
  - Cerebral artery thrombosis [Unknown]
  - Embolism [Unknown]
